FAERS Safety Report 17740296 (Version 1)
Quarter: 2020Q2

REPORT INFORMATION
  Report Type: Spontaneous
  Country: US (occurrence: US)
  Receive Date: 20200504
  Receipt Date: 20200504
  Transmission Date: 20200714
  Serious: No
  Sender: FDA-Public Use
  Company Number: US-PFIZER INC-2020177854

PATIENT
  Age: 75 Year
  Sex: Female

DRUGS (1)
  1. IBRANCE [Suspect]
     Active Substance: PALBOCICLIB
     Dosage: 125 MG
     Dates: start: 20190520

REACTIONS (5)
  - Oropharyngeal pain [Unknown]
  - Diarrhoea [Unknown]
  - Vomiting [Unknown]
  - Ear pain [Unknown]
  - Alopecia [Unknown]
